FAERS Safety Report 8996659 (Version 3)
Quarter: 2013Q1

REPORT INFORMATION
  Report Type: Spontaneous
  Country: US (occurrence: US)
  Receive Date: 20130104
  Receipt Date: 20130219
  Transmission Date: 20140127
  Serious: Yes (Other)
  Sender: FDA-Public Use
  Company Number: US-PFIZER INC-2013001262

PATIENT
  Age: 80 Year
  Sex: Female
  Weight: 59 kg

DRUGS (4)
  1. GLUCOTROL XL [Suspect]
     Indication: TYPE 2 DIABETES MELLITUS
     Dosage: 10 MG, 2X/DAY
  2. CADUET [Suspect]
     Indication: HYPERTENSION
     Dosage: 20/40 MG, DAILY
  3. PLAVIX [Concomitant]
     Indication: CEREBROVASCULAR ACCIDENT
     Dosage: 75 MG, DAILY
  4. XALATAN [Concomitant]
     Dosage: UNK

REACTIONS (3)
  - Influenza [Recovered/Resolved]
  - Bronchitis [Recovered/Resolved]
  - Malaise [Recovered/Resolved]
